FAERS Safety Report 5637186-7 (Version None)
Quarter: 2008Q1

REPORT INFORMATION
  Report Type: 
  Country: None (occurrence: None)
  Receive Date: 20080225
  Receipt Date: 20080220
  Transmission Date: 20080703
  Serious: Yes (Other)
  Sender: FDA-Public Use
  Company Number: NL-BRISTOL-MYERS SQUIBB COMPANY-14060297

PATIENT
  Age: 58 Year
  Sex: Female
  Weight: 67 kg

DRUGS (4)
  1. ABATACEPT [Suspect]
     Indication: RHEUMATOID ARTHRITIS
     Dosage: 28-NOV-2007, 11-DEC-2007 AND 02-JAN-2008
     Route: 042
     Dates: start: 20071128
  2. PREDNISONE TAB [Concomitant]
  3. CORTICOSTEROID [Concomitant]
  4. ETANERCEPT [Concomitant]
     Dates: start: 20070101, end: 20071126

REACTIONS (2)
  - EPILEPSY [None]
  - PNEUMONIA MYCOPLASMAL [None]
